FAERS Safety Report 24453715 (Version 2)
Quarter: 2024Q4

REPORT INFORMATION
  Report Type: Report from Study
  Country: ZA (occurrence: ZA)
  Receive Date: 20241017
  Receipt Date: 20241018
  Transmission Date: 20250115
  Serious: No
  Sender: ROCHE
  Company Number: ZA-ROCHE-3393143

PATIENT
  Sex: Male

DRUGS (1)
  1. RITUXIMAB [Suspect]
     Active Substance: RITUXIMAB
     Indication: Rheumatoid arthritis
     Dosage: REPEATED 6-MONTHLY, FIRST INFUSION ON 18/JAN/2024, 2ND INFUSION ON 22/FEB/2024
     Route: 041
     Dates: start: 20230703

REACTIONS (4)
  - Illness [Unknown]
  - Blood creatinine increased [Unknown]
  - C-reactive protein increased [Unknown]
  - Tonsillitis [Unknown]

NARRATIVE: CASE EVENT DATE: 20231031
